FAERS Safety Report 9559335 (Version 1)
Quarter: 2013Q3

REPORT INFORMATION
  Report Type: Spontaneous
  Country: US (occurrence: US)
  Receive Date: 20130927
  Receipt Date: 20130927
  Transmission Date: 20140515
  Serious: Yes (Other)
  Sender: FDA-Public Use
  Company Number: US-AMGEN-USASP2013067171

PATIENT
  Age: 51 Year
  Sex: Female

DRUGS (1)
  1. ENBREL [Suspect]
     Indication: RHEUMATOID ARTHRITIS
     Dosage: UNKNOWN DOSAGE ONCE WEEKLY
     Route: 065
     Dates: start: 20121116, end: 201301

REACTIONS (2)
  - Systemic lupus erythematosus [Recovered/Resolved]
  - Feeling hot [Recovered/Resolved]
